FAERS Safety Report 10162100 (Version 1)
Quarter: 2014Q2

REPORT INFORMATION
  Report Type: Spontaneous
  Country: US (occurrence: None)
  Receive Date: 20140508
  Receipt Date: 20140508
  Transmission Date: 20141212
  Serious: Yes (Hospitalization)
  Sender: FDA-Public Use
  Company Number: None

PATIENT
  Age: 8 Year
  Sex: Male

DRUGS (6)
  1. DAUNORUBICIN [Suspect]
     Dates: start: 20140424
  2. DEXAMETHASONE [Suspect]
     Dates: start: 20140430
  3. PEG-L-ASPARAGINASE (PEGASPARGASE, ONCOSPAR) [Suspect]
     Dates: start: 20140424
  4. METHOTREXATE [Suspect]
     Dates: start: 20140424
  5. CYTARABINE [Suspect]
     Dates: start: 20140416
  6. VINCRISTINE SULFATE [Suspect]
     Dates: start: 20140424

REACTIONS (14)
  - Hypoxia [None]
  - Respiratory failure [None]
  - Hypotension [None]
  - Pseudomonas test positive [None]
  - Blood culture positive [None]
  - Influenza A virus test positive [None]
  - Sepsis [None]
  - Pneumatosis [None]
  - Ischaemia [None]
  - Ascites [None]
  - Cardiotoxicity [None]
  - White blood cell count decreased [None]
  - Hypernatraemia [None]
  - Neutrophil count decreased [None]
